FAERS Safety Report 25410707 (Version 1)
Quarter: 2025Q2

REPORT INFORMATION
  Report Type: Report from Study
  Country: CA (occurrence: CA)
  Receive Date: 20250609
  Receipt Date: 20250609
  Transmission Date: 20250717
  Serious: Yes (Hospitalization)
  Sender: ABBVIE
  Company Number: CA-LUNDBECK-DKLU3057595

PATIENT

DRUGS (2)
  1. ESCITALOPRAM [Suspect]
     Active Substance: ESCITALOPRAM OXALATE
     Indication: Suicide attempt
     Route: 048
  2. ESZOPICLONE [Suspect]
     Active Substance: ESZOPICLONE
     Indication: Suicide attempt
     Route: 048

REACTIONS (3)
  - Intentional product misuse [Unknown]
  - Product administered to patient of inappropriate age [Unknown]
  - Electrocardiogram QT prolonged [Unknown]
